FAERS Safety Report 8839507 (Version 2)
Quarter: 2013Q1

REPORT INFORMATION
  Report Type: Spontaneous
  Country: US (occurrence: US)
  Receive Date: 20121015
  Receipt Date: 20130118
  Transmission Date: 20140127
  Serious: Yes (Death)
  Sender: FDA-Public Use
  Company Number: US-BAYER-2012-105415

PATIENT
  Age: 21 Year
  Sex: Female
  Weight: 60.32 kg

DRUGS (11)
  1. YASMIN [Suspect]
     Dosage: UNK
  2. PULMICORT TURBUHALER [Concomitant]
  3. XOPENEX [Concomitant]
  4. PREDNISONE [Concomitant]
     Route: 048
  5. IBUPROFEN [Concomitant]
     Dosage: 600 MG, UNK
     Route: 048
     Dates: start: 20061009
  6. DIPHENOXYLATE/ATROPINE [Concomitant]
     Dosage: UNK
     Route: 048
     Dates: start: 20061009
  7. HYDROCODONE W/APAP [Concomitant]
     Dosage: 5 MG, UNK
     Route: 048
     Dates: start: 20061009
  8. HYDROCODONE W/APAP [Concomitant]
     Dosage: 500 MG, UNK
     Route: 048
     Dates: start: 20061009
  9. PAXIL [Concomitant]
     Dosage: 25 MG, UNK
     Route: 048
     Dates: start: 20061027
  10. AMOXICILLIN [Concomitant]
     Dosage: 875 MG, UNK
     Route: 048
     Dates: start: 20061027
  11. VALTREX [Concomitant]
     Dosage: 500 MG, UNK
     Route: 048
     Dates: start: 20070104

REACTIONS (1)
  - Pulmonary embolism [Fatal]
